FAERS Safety Report 15202306 (Version 3)
Quarter: 2018Q3

REPORT INFORMATION
  Report Type: Spontaneous
  Country: US (occurrence: US)
  Receive Date: 20180726
  Receipt Date: 20180926
  Transmission Date: 20181010
  Serious: Yes (Hospitalization)
  Sender: FDA-Public Use
  Company Number: US-UNITED THERAPEUTICS-UNT-2018-010730

PATIENT
  Age: 74 Year
  Sex: Female

DRUGS (30)
  1. ORENITRAM [Suspect]
     Active Substance: TREPROSTINIL
     Dosage: 6.125 MG, QD AT QAM (EVERY MORNING)
     Route: 048
  2. AMBRISENTAN [Suspect]
     Active Substance: AMBRISENTAN
     Dosage: 5 MG, QD
     Route: 065
     Dates: start: 20170706
  3. ORENITRAM [Suspect]
     Active Substance: TREPROSTINIL
     Indication: PULMONARY HYPERTENSION
     Dosage: UNK
     Route: 048
     Dates: start: 20180709
  4. ORENITRAM [Suspect]
     Active Substance: TREPROSTINIL
     Dosage: 6.125 MG, QD AT QAM (EVERY MORNING)
     Route: 048
  5. ORENITRAM [Suspect]
     Active Substance: TREPROSTINIL
     Dosage: 6.25 MG, AT NOON AND EVENING
     Route: 048
  6. ORENITRAM [Suspect]
     Active Substance: TREPROSTINIL
     Indication: PULMONARY ARTERIAL HYPERTENSION
     Dosage: 5.875 MG, TID
     Route: 048
     Dates: start: 20180223
  7. AMBRISENTAN [Suspect]
     Active Substance: AMBRISENTAN
     Indication: PULMONARY HYPERTENSION
     Dosage: 10 MG, QD
     Route: 065
     Dates: start: 20170705
  8. ORENITRAM [Suspect]
     Active Substance: TREPROSTINIL
     Dosage: 6.25 MG, AT NOON AND EVENING
     Route: 048
  9. ORENITRAM [Suspect]
     Active Substance: TREPROSTINIL
     Dosage: 6.125 MG, TID
     Route: 048
  10. ORENITRAM [Suspect]
     Active Substance: TREPROSTINIL
     Indication: PULMONARY ARTERIAL HYPERTENSION
     Dosage: 5.875 MG, TID
     Route: 048
     Dates: start: 20180223
  11. ORENITRAM [Suspect]
     Active Substance: TREPROSTINIL
     Indication: PULMONARY HYPERTENSION
     Dosage: UNK
     Route: 048
     Dates: start: 20180709
  12. ORENITRAM [Suspect]
     Active Substance: TREPROSTINIL
     Dosage: 6.125 MG, QD AT QAM
     Route: 048
  13. ORENITRAM [Suspect]
     Active Substance: TREPROSTINIL
     Indication: PULMONARY ARTERIAL HYPERTENSION
     Dosage: 5.875 MG, TID
     Route: 048
     Dates: start: 20180223
  14. ORENITRAM [Suspect]
     Active Substance: TREPROSTINIL
     Dosage: 5.75 MG, TID
     Route: 048
  15. ORENITRAM [Suspect]
     Active Substance: TREPROSTINIL
     Indication: PULMONARY HYPERTENSION
     Dosage: UNK
     Route: 048
     Dates: start: 20180709
  16. ORENITRAM [Suspect]
     Active Substance: TREPROSTINIL
     Dosage: 5.75 MG, TID
     Route: 048
  17. ORENITRAM [Suspect]
     Active Substance: TREPROSTINIL
     Dosage: 6.25 MG, AT NOON AND EVENING
     Route: 048
  18. ORENITRAM [Suspect]
     Active Substance: TREPROSTINIL
     Dosage: 6.125 MG, TID
     Route: 048
  19. ORENITRAM [Suspect]
     Active Substance: TREPROSTINIL
     Indication: PULMONARY ARTERIAL HYPERTENSION
     Dosage: 5.875 MG, TID
     Route: 048
     Dates: start: 20180223
  20. ORENITRAM [Suspect]
     Active Substance: TREPROSTINIL
     Dosage: 5.75 MG, TID
     Route: 048
  21. ORENITRAM [Suspect]
     Active Substance: TREPROSTINIL
     Indication: PULMONARY HYPERTENSION
     Dosage: UNK
     Route: 048
     Dates: start: 20180709
  22. ORENITRAM [Suspect]
     Active Substance: TREPROSTINIL
     Indication: PULMONARY ARTERIAL HYPERTENSION
     Dosage: 5.875 MG, TID
     Route: 048
     Dates: start: 20180223
  23. ORENITRAM [Suspect]
     Active Substance: TREPROSTINIL
     Indication: PULMONARY HYPERTENSION
     Dosage: UNK
     Route: 048
     Dates: start: 20180709
  24. ORENITRAM [Suspect]
     Active Substance: TREPROSTINIL
     Dosage: 6.125 MG, TID
     Route: 048
  25. ORENITRAM [Suspect]
     Active Substance: TREPROSTINIL
     Dosage: 6.125 MG, QD AT QAM (EVERY MORNING)
     Route: 048
  26. ORENITRAM [Suspect]
     Active Substance: TREPROSTINIL
     Dosage: 5.75 MG, TID
     Route: 048
  27. ORENITRAM [Suspect]
     Active Substance: TREPROSTINIL
     Dosage: 6.25 MG, AT NOON AND EVENING
     Route: 048
  28. ORENITRAM [Suspect]
     Active Substance: TREPROSTINIL
     Dosage: 5.75 MG, TID
     Route: 048
  29. ORENITRAM [Suspect]
     Active Substance: TREPROSTINIL
     Dosage: 6.25 MG, AT NOON AND EVENING
     Route: 048
  30. ORENITRAM [Suspect]
     Active Substance: TREPROSTINIL
     Dosage: 6.125 MG, QD AT QAM (EVERY MORNING)
     Route: 048

REACTIONS (5)
  - Hip fracture [Recovered/Resolved]
  - Back pain [Not Recovered/Not Resolved]
  - Fall [Recovered/Resolved with Sequelae]
  - Oedema peripheral [Not Recovered/Not Resolved]
  - Pain in extremity [Not Recovered/Not Resolved]

NARRATIVE: CASE EVENT DATE: 2018
